FAERS Safety Report 24384442 (Version 1)
Quarter: 2024Q4

REPORT INFORMATION
  Report Type: Spontaneous
  Country: US (occurrence: US)
  Receive Date: 20241001
  Receipt Date: 20241001
  Transmission Date: 20250115
  Serious: Yes (Other)
  Sender: JOHNSON AND JOHNSON
  Company Number: US-JNJFOC-20240952060

PATIENT
  Age: 13 Year
  Sex: Female

DRUGS (7)
  1. STELARA [Suspect]
     Active Substance: USTEKINUMAB
     Indication: Juvenile psoriatic arthritis
     Route: 058
     Dates: start: 20240612
  2. IBUPROFEN [Concomitant]
     Active Substance: IBUPROFEN
  3. PREDNISONE [Concomitant]
     Active Substance: PREDNISONE
  4. ALBUTEROL SULFATE [Concomitant]
     Active Substance: ALBUTEROL SULFATE
  5. METHOTREXATE [Concomitant]
     Active Substance: METHOTREXATE
     Dosage: 25MG/ML
  6. FOLIC ACID [Concomitant]
     Active Substance: FOLIC ACID
  7. HUMIRA [Concomitant]
     Active Substance: ADALIMUMAB
     Dosage: 20/0.2ML

REACTIONS (2)
  - Juvenile psoriatic arthritis [Not Recovered/Not Resolved]
  - Off label use [Unknown]
